FAERS Safety Report 22927824 (Version 3)
Quarter: 2023Q4

REPORT INFORMATION
  Report Type: Report from Study
  Country: KR (occurrence: None)
  Receive Date: 20230911
  Receipt Date: 20231025
  Transmission Date: 20240109
  Serious: Yes (Hospitalization)
  Sender: FDA-Public Use
  Company Number: KR-ROCHE-3417306

PATIENT
  Age: 66 Year
  Sex: Female
  Weight: 46.4 kg

DRUGS (2)
  1. ATEZOLIZUMAB [Suspect]
     Active Substance: ATEZOLIZUMAB
     Indication: Breast cancer metastatic
     Dosage: DOSE LAST STUDY DRUG ADMIN PRIOR AE AND SAE : 840 MG?START DATE OF MOST RECENT DOSE OF STUDY DRUG PR
     Route: 041
     Dates: start: 20230807
  2. GIREDESTRANT [Suspect]
     Active Substance: GIREDESTRANT
     Indication: Breast cancer metastatic
     Dosage: START DATE OF MOST RECENT DOSE OF STUDY DRUG PRIOR TO AE: 01/SEP/2023.
     Route: 048
     Dates: start: 20230807

REACTIONS (1)
  - Immune-mediated neuropathy [Recovering/Resolving]

NARRATIVE: CASE EVENT DATE: 20230904
